FAERS Safety Report 19110873 (Version 1)
Quarter: 2021Q2

REPORT INFORMATION
  Report Type: Spontaneous
  Country: DE (occurrence: DE)
  Receive Date: 20210408
  Receipt Date: 20210408
  Transmission Date: 20210717
  Serious: Yes (Hospitalization, Other)
  Sender: FDA-Public Use
  Company Number: DE-009507513-2104DEU001273

PATIENT
  Age: 78 Year
  Sex: Male

DRUGS (1)
  1. BCG LIVE [Suspect]
     Active Substance: BACILLUS CALMETTE-GUERIN SUBSTRAIN TICE LIVE ANTIGEN
     Indication: BLADDER CANCER
     Dosage: MULTIPLE APLLICATIONS
     Route: 043

REACTIONS (3)
  - Infective aneurysm [Recovered/Resolved]
  - Vascular graft infection [Recovered/Resolved]
  - Mycobacterial infection [Recovered/Resolved]

NARRATIVE: CASE EVENT DATE: 2018
